FAERS Safety Report 6381765-9 (Version None)
Quarter: 2009Q3

REPORT INFORMATION
  Report Type: 
  Country: None (occurrence: None)
  Receive Date: 20090930
  Receipt Date: 20071227
  Transmission Date: 20100115
  Serious: Yes (Other)
  Sender: FDA-Public Use
  Company Number: US-ASTRAZENECA-2006UW27787

PATIENT
  Age: 45 Year
  Sex: Female
  Weight: 117.9 kg

DRUGS (10)
  1. SEROQUEL [Suspect]
     Indication: SLEEP DISORDER
     Route: 048
     Dates: start: 20020101
  2. SEROQUEL [Suspect]
     Dosage: 800 MG
     Route: 048
     Dates: start: 20030204
  3. LOESTRIN 21 1/20 [Concomitant]
     Dates: start: 20020101
  4. EFFEXOR [Concomitant]
     Dosage: 150-300 MG
     Dates: start: 20030101
  5. TRAZODONE [Concomitant]
     Dosage: AT NIGHT
     Dates: start: 20030101
  6. WELLBUTRIN [Concomitant]
     Dates: start: 20030101
  7. PROZAC [Concomitant]
     Dosage: 40-80 MG
     Dates: start: 20040101
  8. PERCOCET [Concomitant]
     Dosage: 30-40 MG
     Dates: start: 20040101
  9. XANAX [Concomitant]
     Dates: start: 20040101
  10. NEURONTIN [Concomitant]
     Dosage: 300-900 MG
     Dates: start: 20040101, end: 20040301

REACTIONS (3)
  - DIABETES MELLITUS [None]
  - NEUROPATHY PERIPHERAL [None]
  - TYPE 2 DIABETES MELLITUS [None]
